FAERS Safety Report 6587267-9 (Version None)
Quarter: 2010Q1

REPORT INFORMATION
  Report Type: 
  Country: None (occurrence: None)
  Receive Date: 20100217
  Receipt Date: 20090508
  Transmission Date: 20100710
  Serious: No
  Sender: FDA-Public Use
  Company Number: US-ALLERGAN-0906485US

PATIENT
  Sex: Female

DRUGS (3)
  1. BOTOX COSMETIC [Suspect]
     Indication: SKIN WRINKLING
     Dosage: UNK, SINGLE
     Route: 030
     Dates: start: 20080901, end: 20080901
  2. BOTOX COSMETIC [Suspect]
     Dosage: 10 UNITS, SINGLE
     Route: 030
  3. ALCOHOL [Concomitant]
     Route: 061

REACTIONS (1)
  - INJECTION SITE INFECTION [None]
